FAERS Safety Report 10691132 (Version 1)
Quarter: 2015Q1

REPORT INFORMATION
  Report Type: Spontaneous
  Country: BR (occurrence: BR)
  Receive Date: 20150105
  Receipt Date: 20150105
  Transmission Date: 20150720
  Serious: Yes (Other)
  Sender: FDA-Public Use
  Company Number: BR-PFIZER INC-2015000920

PATIENT
  Age: 52 Year
  Sex: Male

DRUGS (1)
  1. DOSTINEX [Suspect]
     Active Substance: CABERGOLINE
     Indication: BLOOD PROLACTIN INCREASED
     Dosage: ONE TABLET (0.5 MG), 2X/WEEK
     Route: 048
     Dates: start: 2010

REACTIONS (1)
  - Neoplasm [Unknown]
